FAERS Safety Report 4484911-7 (Version None)
Quarter: 2004Q3

REPORT INFORMATION
  Report Type: 
  Country: None (occurrence: None)
  Receive Date: 20040921
  Receipt Date: 20040224
  Transmission Date: 20050211
  Serious: Yes (Hospitalization)
  Sender: FDA-Public Use
  Company Number: 163-20785-04020690

PATIENT
  Age: 70 Year
  Sex: Female
  Weight: 58 kg

DRUGS (10)
  1. THALOMID [Suspect]
     Indication: BREAST NEOPLASM
     Dosage: SEE IMAGE
     Route: 048
     Dates: start: 20040114, end: 20040120
  2. THALOMID [Suspect]
     Indication: METASTASES TO CENTRAL NERVOUS SYSTEM
     Dosage: SEE IMAGE
     Route: 048
     Dates: start: 20040114, end: 20040120
  3. THALOMID [Suspect]
     Indication: BREAST NEOPLASM
     Dosage: SEE IMAGE
     Route: 048
     Dates: start: 20040121, end: 20040127
  4. THALOMID [Suspect]
     Indication: METASTASES TO CENTRAL NERVOUS SYSTEM
     Dosage: SEE IMAGE
     Route: 048
     Dates: start: 20040121, end: 20040127
  5. THALOMID [Suspect]
     Indication: BREAST NEOPLASM
     Dosage: SEE IMAGE
     Route: 048
     Dates: start: 20040128, end: 20040211
  6. THALOMID [Suspect]
     Indication: METASTASES TO CENTRAL NERVOUS SYSTEM
     Dosage: SEE IMAGE
     Route: 048
     Dates: start: 20040128, end: 20040211
  7. THALOMID [Suspect]
     Indication: BREAST NEOPLASM
     Dosage: SEE IMAGE
     Route: 048
     Dates: start: 20040219, end: 20040302
  8. THALOMID [Suspect]
     Indication: METASTASES TO CENTRAL NERVOUS SYSTEM
     Dosage: SEE IMAGE
     Route: 048
     Dates: start: 20040219, end: 20040302
  9. ARIMIDEX [Concomitant]
  10. SYNTHROID [Concomitant]

REACTIONS (3)
  - DEEP VEIN THROMBOSIS [None]
  - DYSPNOEA [None]
  - PULMONARY EMBOLISM [None]
